FAERS Safety Report 10907038 (Version 1)
Quarter: 2015Q1

REPORT INFORMATION
  Report Type: Report from Study
  Country: CA (occurrence: CA)
  Receive Date: 20150312
  Receipt Date: 20150312
  Transmission Date: 20150721
  Serious: Yes (Other)
  Sender: FDA-Public Use
  Company Number: CA-JNJFOC-20150302607

PATIENT
  Age: 38 Year
  Sex: Female
  Weight: 62 kg

DRUGS (2)
  1. REMICADE [Suspect]
     Active Substance: INFLIXIMAB
     Indication: CROHN^S DISEASE
     Route: 042
     Dates: start: 2013
  2. REMICADE [Suspect]
     Active Substance: INFLIXIMAB
     Indication: CROHN^S DISEASE
     Route: 042
     Dates: start: 20141222

REACTIONS (6)
  - Hernia [Unknown]
  - Resection of rectum [Unknown]
  - Ileostomy [Unknown]
  - Fistula [Unknown]
  - Intestinal operation [Unknown]
  - Oophorectomy [Unknown]

NARRATIVE: CASE EVENT DATE: 20150220
